FAERS Safety Report 5110031-4 (Version None)
Quarter: 2006Q3

REPORT INFORMATION
  Report Type: 
  Country: None (occurrence: None)
  Receive Date: 20060921
  Receipt Date: 20060824
  Transmission Date: 20061208
  Serious: Yes (Hospitalization)
  Sender: FDA-Public Use
  Company Number: US-AMGEN-US191042

PATIENT
  Sex: Female
  Weight: 41 kg

DRUGS (9)
  1. EPOGEN [Suspect]
     Indication: DIALYSIS
     Dates: start: 20060101
  2. LIPITOR [Concomitant]
     Route: 048
     Dates: start: 20040722
  3. COUMADIN [Concomitant]
     Route: 048
     Dates: start: 20060829
  4. ASPIRIN [Concomitant]
  5. ROCALTROL [Concomitant]
     Route: 048
     Dates: start: 20060905
  6. MORPHINE [Concomitant]
  7. NEPHROCAPS [Concomitant]
     Dates: start: 20060718
  8. TRICOR [Concomitant]
     Route: 048
     Dates: start: 20060831
  9. KLOR-CON [Concomitant]
     Dates: start: 20060829

REACTIONS (7)
  - ASCITES [None]
  - CHOLELITHIASIS [None]
  - CLOSTRIDIUM DIFFICILE COLITIS [None]
  - HEPATIC CYST [None]
  - PANCREATITIS ACUTE [None]
  - PERITONITIS [None]
  - RENAL CYST [None]
